FAERS Safety Report 5662438-4 (Version None)
Quarter: 2008Q1

REPORT INFORMATION
  Report Type: 
  Country: None (occurrence: None)
  Receive Date: 20080313
  Receipt Date: 20080303
  Transmission Date: 20080703
  Serious: Yes (Death, Hospitalization)
  Sender: FDA-Public Use
  Company Number: US-TYCO HEALTHCARE/MALLINCKRODT-T200800407

PATIENT

DRUGS (1)
  1. ULTRA-TECHNEKOW [Suspect]
     Indication: MULTIPLE GATED ACQUISITION SCAN
     Dosage: UNK, SINGLE
     Dates: start: 20070301, end: 20070301

REACTIONS (3)
  - INFECTION [None]
  - NEOPLASM MALIGNANT [None]
  - PYREXIA [None]
